APPROVED DRUG PRODUCT: PROMETHAZINE HYDROCHLORIDE, PHENYLEPHRINE HYDROCHLORIDE W/CODEINE PHOSPHATE
Active Ingredient: CODEINE PHOSPHATE; PHENYLEPHRINE HYDROCHLORIDE; PROMETHAZINE HYDROCHLORIDE
Strength: 10MG/5ML;5MG/5ML;6.25MG/5ML
Dosage Form/Route: SYRUP;ORAL
Application: A040674 | Product #001
Applicant: HIKMA PHARMACEUTICALS USA INC
Approved: Dec 23, 2014 | RLD: No | RS: No | Type: DISCN